FAERS Safety Report 4577482-8 (Version None)
Quarter: 2005Q1

REPORT INFORMATION
  Report Type: 
  Country: None (occurrence: None)
  Receive Date: 20050208
  Receipt Date: 20041217
  Transmission Date: 20050727
  Serious: Yes (Hospitalization)
  Sender: FDA-Public Use
  Company Number: EWC041141409

PATIENT
  Age: 40 Year
  Sex: Female
  Weight: 60 kg

DRUGS (11)
  1. ZYPREXA [Suspect]
     Indication: SCHIZOPHRENIA
     Dosage: 2 DSG FORM/2 DAY
     Dates: start: 20041001, end: 20041010
  2. ZINACEF [Concomitant]
  3. POLIBAR (BARIUM SULFATE) [Concomitant]
  4. ZELDOX (ZIPRASIDONE HYDROCHLORIDE) [Concomitant]
  5. HALOPERIDOL [Concomitant]
  6. AKINETON [Concomitant]
  7. CIPROFLOXACIN [Concomitant]
  8. PAXIRASOL (BROMHEXINE HYDROCHLORIDE) [Concomitant]
  9. CLONAZEPAM [Concomitant]
  10. AUGMENTIN '125' [Concomitant]
  11. CLOZAPINE [Concomitant]

REACTIONS (2)
  - NEUROLEPTIC MALIGNANT SYNDROME [None]
  - PNEUMONIA [None]
